FAERS Safety Report 4648019-X (Version None)
Quarter: 2005Q2

REPORT INFORMATION
  Report Type: 
  Country: None (occurrence: None)
  Receive Date: 20050428
  Receipt Date: 20041112
  Transmission Date: 20051028
  Serious: Yes (Hospitalization, Disabling)
  Sender: FDA-Public Use
  Company Number: DE-MERCK-0411DEU00392

PATIENT
  Age: 58 Year
  Sex: Female
  Weight: 72 kg

DRUGS (11)
  1. VIOXX [Suspect]
     Indication: POLYARTHRITIS
     Route: 048
     Dates: start: 20020308, end: 20020324
  2. VIOXX [Suspect]
     Route: 048
     Dates: start: 20020325, end: 20041004
  3. VIOXX [Suspect]
     Route: 048
     Dates: start: 20010718, end: 20020307
  4. ALPRAZOLAM [Concomitant]
     Route: 048
  5. POTASSIUM CITRATE AND POTASSIUM BICARBONATE [Concomitant]
     Route: 048
  6. SPIRONOLACTONE [Concomitant]
     Route: 048
  7. ZOCOR [Concomitant]
     Route: 048
  8. DICLOFENAC DIETHYLAMINE [Concomitant]
     Route: 061
  9. GLOBULIN, IMMUNE [Concomitant]
     Route: 030
  10. ANTIMICROBIAL (UNSPECIFIED) [Concomitant]
     Route: 065
  11. ACETAMINOPHEN [Concomitant]
     Route: 065

REACTIONS (13)
  - ARRHYTHMIA [None]
  - BACTERIAL INFECTION [None]
  - CARDIAC DISORDER [None]
  - DIABETES MELLITUS NON-INSULIN-DEPENDENT [None]
  - DIZZINESS [None]
  - FATIGUE [None]
  - GASTROINTESTINAL DISORDER [None]
  - HYPERHIDROSIS [None]
  - MALAISE [None]
  - OEDEMA PERIPHERAL [None]
  - POLYARTHRITIS [None]
  - SUPRAVENTRICULAR EXTRASYSTOLES [None]
  - SYNCOPE [None]
